FAERS Safety Report 24571794 (Version 4)
Quarter: 2025Q1

REPORT INFORMATION
  Report Type: Spontaneous
  Country: US (occurrence: US)
  Receive Date: 20241101
  Receipt Date: 20250314
  Transmission Date: 20250409
  Serious: No
  Sender: BLUEPRINT MEDICINES
  Company Number: US-Blueprint Medicines Corporation-5161

PATIENT
  Age: 61 Year
  Sex: Female

DRUGS (3)
  1. AYVAKIT [Suspect]
     Active Substance: AVAPRITINIB
     Indication: Malignant mast cell neoplasm
     Dates: start: 20230711
  2. AYVAKIT [Suspect]
     Active Substance: AVAPRITINIB
     Dates: start: 20230711
  3. AYVAKIT [Suspect]
     Active Substance: AVAPRITINIB
     Route: 065
     Dates: start: 20230711

REACTIONS (7)
  - Vein disorder [Unknown]
  - Ophthalmic migraine [Unknown]
  - Osteoporosis [Unknown]
  - Memory impairment [Unknown]
  - Laboratory test abnormal [Unknown]
  - Anxiety [Unknown]
  - Depression [Unknown]

NARRATIVE: CASE EVENT DATE: 20241001
